FAERS Safety Report 6989321-6 (Version None)
Quarter: 2010Q3

REPORT INFORMATION
  Report Type: 
  Country: None (occurrence: None)
  Receive Date: 20100916
  Receipt Date: 20100120
  Transmission Date: 20110219
  Serious: Yes (Other)
  Sender: FDA-Public Use
  Company Number: FR-PFIZER INC-2009198990

PATIENT
  Age: 86 Year
  Sex: Female

DRUGS (1)
  1. LYRICA [Suspect]
     Indication: PAIN
     Dosage: 50MG IN MORNING, 75MG IN EVENING
     Dates: start: 20081001, end: 20090101

REACTIONS (4)
  - CATARACT [None]
  - GLAUCOMA [None]
  - MACULAR DEGENERATION [None]
  - VISION BLURRED [None]
